FAERS Safety Report 8780347 (Version 1)
Quarter: 2012Q4

REPORT INFORMATION
  Report Type: Spontaneous
  Country: IT (occurrence: None)
  Receive Date: 20120828
  Receipt Date: 20120828
  Transmission Date: 20130627
  Serious: Yes (Hospitalization)
  Sender: FDA-Public Use
  Company Number: 2012AP002717

PATIENT
  Age: 50 Year
  Sex: Male

DRUGS (3)
  1. CLARITHROMYCIN (CLARITHROMYCIN) [Suspect]
     Dates: start: 20120611, end: 20120617
  2. LEVOFLOXACIN (LEVOFLOXACIN) [Suspect]
     Dates: start: 20120611, end: 20120617
  3. RABEPRAZOLE SODIUM (RABEPRAZOLE SODIUM) [Suspect]
     Dates: start: 20120611, end: 20120617

REACTIONS (4)
  - Malaise [None]
  - Chest discomfort [None]
  - Face oedema [None]
  - Oedema peripheral [None]
